FAERS Safety Report 20412158 (Version 1)
Quarter: 2022Q1

REPORT INFORMATION
  Report Type: Report from Study
  Country: CA (occurrence: None)
  Receive Date: 20220201
  Receipt Date: 20220201
  Transmission Date: 20220424
  Serious: Yes (Death)
  Sender: FDA-Public Use
  Company Number: 2022A049812

PATIENT
  Age: 1102 Month
  Sex: Male

DRUGS (4)
  1. CALQUENCE [Suspect]
     Active Substance: ACALABRUTINIB
     Indication: Chronic lymphocytic leukaemia
     Route: 048
     Dates: start: 20211206
  2. LISINOPRIL [Concomitant]
     Active Substance: LISINOPRIL
  3. RABEPRAZOLE [Concomitant]
     Active Substance: RABEPRAZOLE
  4. SYNTHROID [Concomitant]
     Active Substance: LEVOTHYROXINE SODIUM

REACTIONS (1)
  - Death [Fatal]

NARRATIVE: CASE EVENT DATE: 20220101
